FAERS Safety Report 9170578 (Version 1)
Quarter: 2013Q1

REPORT INFORMATION
  Report Type: Spontaneous
  Country: KR (occurrence: None)
  Receive Date: 20130312
  Receipt Date: 20130312
  Transmission Date: 20140127
  Serious: Yes (Hospitalization)
  Sender: FDA-Public Use
  Company Number: IMP_06590_2013

PATIENT
  Age: 51 Year
  Sex: Male

DRUGS (5)
  1. METFORMIN (METFORMIN) [Suspect]
  2. INSULIN (UNKNOWN) [Concomitant]
  3. AMLODIPINE BESYLATE (UNKNOWN) [Concomitant]
  4. ASPIRIN (UNKNOWN) [Concomitant]
  5. WATER-SOLUBLE VITAMIN COMPLEX (UNKNOWN) [Concomitant]

REACTIONS (11)
  - Dysarthria [None]
  - Myoclonus [None]
  - Gait disturbance [None]
  - Diabetic autonomic neuropathy [None]
  - Hypotension [None]
  - Blood pressure increased [None]
  - Encephalopathy [None]
  - Lactic acidosis [None]
  - Hypoglycaemia [None]
  - Renal impairment [None]
  - Acute hepatic failure [None]
